FAERS Safety Report 12299307 (Version 1)
Quarter: 2016Q2

REPORT INFORMATION
  Report Type: Spontaneous
  Country: US (occurrence: US)
  Receive Date: 20160425
  Receipt Date: 20160425
  Transmission Date: 20160815
  Serious: Yes (Other)
  Sender: FDA-Public Use
  Company Number: US-BAYER-2016-075174

PATIENT
  Age: 73 Year
  Sex: Female

DRUGS (12)
  1. CHLORTHALIDONE. [Concomitant]
     Active Substance: CHLORTHALIDONE
  2. VITAMINS NOS [Concomitant]
     Active Substance: VITAMINS
  3. FLAXSEED [Concomitant]
     Active Substance: FLAX SEED
  4. ATENOLOL. [Concomitant]
     Active Substance: ATENOLOL
  5. ALEVE [Suspect]
     Active Substance: NAPROXEN SODIUM
     Indication: ARTHRITIS
     Dosage: UNK OTHER FERQUENCY
     Route: 048
     Dates: start: 201506, end: 20160414
  6. ENALAPRIL [Concomitant]
     Active Substance: ENALAPRIL
  7. VITAMIN C [Concomitant]
     Active Substance: ASCORBIC ACID
  8. VITAMIN E [Concomitant]
     Active Substance: .ALPHA.-TOCOPHEROL
  9. LUTEIN [Concomitant]
     Active Substance: LUTEIN
  10. FISH OIL [Concomitant]
     Active Substance: FISH OIL
  11. ZOCOR [Concomitant]
     Active Substance: SIMVASTATIN
  12. BAYER LOW DOSE [Concomitant]
     Active Substance: ASPIRIN

REACTIONS (3)
  - Off label use [None]
  - Product use issue [None]
  - Hypertension [Recovered/Resolved]

NARRATIVE: CASE EVENT DATE: 20160414
